FAERS Safety Report 9210300 (Version 4)
Quarter: 2013Q2

REPORT INFORMATION
  Report Type: Spontaneous
  Country: US (occurrence: US)
  Receive Date: 20130404
  Receipt Date: 20130517
  Transmission Date: 20140414
  Serious: Yes (Death)
  Sender: FDA-Public Use
  Company Number: US-ROCHE-1209665

PATIENT
  Sex: Female

DRUGS (1)
  1. PERJETA [Suspect]
     Indication: BREAST CANCER METASTATIC
     Route: 065
     Dates: end: 20130323

REACTIONS (1)
  - Death [Fatal]
